FAERS Safety Report 6613373-6 (Version None)
Quarter: 2010Q1

REPORT INFORMATION
  Report Type: 
  Country: None (occurrence: None)
  Receive Date: 20100304
  Receipt Date: 20100219
  Transmission Date: 20100710
  Serious: Yes (Other)
  Sender: FDA-Public Use
  Company Number: PHHY2010NL09819

PATIENT

DRUGS (3)
  1. DIOVAN [Suspect]
  2. NORVASC [Concomitant]
     Dosage: UNK
  3. HYDROCHLOROTHIAZIDE [Concomitant]

REACTIONS (7)
  - ANAEMIA [None]
  - APHTHOUS STOMATITIS [None]
  - DRY MOUTH [None]
  - DYSPHAGIA [None]
  - LEUKOPENIA [None]
  - THROMBOCYTOPENIA [None]
  - WEIGHT DECREASED [None]
